FAERS Safety Report 9674523 (Version 1)
Quarter: 2013Q4

REPORT INFORMATION
  Report Type: Report from Study
  Country: US (occurrence: US)
  Receive Date: 20131107
  Receipt Date: 20131107
  Transmission Date: 20140711
  Serious: Yes (Death, Hospitalization, Other)
  Sender: FDA-Public Use
  Company Number: US-ROCHE-1294199

PATIENT
  Age: 43 Year
  Sex: Female

DRUGS (6)
  1. AVASTIN [Suspect]
     Indication: COLON CANCER
     Route: 065
  2. AVASTIN [Suspect]
     Indication: ADENOCARCINOMA OF APPENDIX
  3. IRINOTECAN [Concomitant]
     Dosage: FOR EIGHT CYCLES
     Route: 065
  4. 5-FU [Concomitant]
     Route: 065
  5. LEUCOVORIN [Concomitant]
  6. ERBITUX [Concomitant]

REACTIONS (15)
  - Dehydration [Unknown]
  - Diarrhoea [Unknown]
  - Leukopenia [Unknown]
  - Blood magnesium abnormal [Unknown]
  - Death [Fatal]
  - Small intestinal obstruction [Unknown]
  - Infection [Unknown]
  - Anaemia [Unknown]
  - Hypokalaemia [Unknown]
  - Disease progression [Unknown]
  - Abdominal pain [Unknown]
  - Decreased appetite [Unknown]
  - Weight decreased [Unknown]
  - Rash papular [Unknown]
  - Pyrexia [Unknown]
